FAERS Safety Report 13740406 (Version 6)
Quarter: 2017Q4

REPORT INFORMATION
  Report Type: Spontaneous
  Country: DE (occurrence: DE)
  Receive Date: 20170711
  Receipt Date: 20171015
  Transmission Date: 20180320
  Serious: Yes (Life-Threatening, Hospitalization, Other)
  Sender: FDA-Public Use
  Company Number: DE-BRISTOL-MYERS SQUIBB COMPANY-BMS-2017-061226

PATIENT
  Age: 40 Year
  Sex: Female
  Weight: 75 kg

DRUGS (5)
  1. OPDIVO [Suspect]
     Active Substance: NIVOLUMAB
     Indication: PRODUCT USED FOR UNKNOWN INDICATION
     Dosage: 1 MG/KG, UNK
     Route: 065
     Dates: start: 20170717
  2. OPDIVO [Suspect]
     Active Substance: NIVOLUMAB
     Indication: METASTATIC MALIGNANT MELANOMA
     Dosage: 1 MG/KG, UNK
     Route: 065
     Dates: start: 20170619
  3. YERVOY [Suspect]
     Active Substance: IPILIMUMAB
     Indication: PRODUCT USED FOR UNKNOWN INDICATION
     Dosage: 3 MG/KG, UNK
     Route: 065
     Dates: start: 20170717
  4. PARACETAMOL [Concomitant]
     Active Substance: ACETAMINOPHEN
     Indication: PRODUCT USED FOR UNKNOWN INDICATION
     Route: 065
  5. YERVOY [Suspect]
     Active Substance: IPILIMUMAB
     Indication: METASTATIC MALIGNANT MELANOMA
     Dosage: 3 MG/KG, UNK
     Route: 065
     Dates: start: 20170619

REACTIONS (13)
  - Dry mouth [Not Recovered/Not Resolved]
  - Obesity [Unknown]
  - Pneumonitis [Unknown]
  - Skin hyperpigmentation [Unknown]
  - Pyrexia [Unknown]
  - Scar [Unknown]
  - Headache [Unknown]
  - Dysphagia [Unknown]
  - Oedema [Unknown]
  - Thyrotoxic crisis [Not Recovered/Not Resolved]
  - General physical health deterioration [Unknown]
  - Pain [Not Recovered/Not Resolved]
  - Pancreatitis [Unknown]

NARRATIVE: CASE EVENT DATE: 20170627
